FAERS Safety Report 18751112 (Version 1)
Quarter: 2021Q1

REPORT INFORMATION
  Report Type: Spontaneous
  Country: FR (occurrence: FR)
  Receive Date: 20210118
  Receipt Date: 20210118
  Transmission Date: 20210419
  Serious: Yes (Other)
  Sender: FDA-Public Use
  Company Number: FR-TEVA-2021-FR-1869508

PATIENT
  Age: 69 Year
  Sex: Female

DRUGS (3)
  1. CLOMIPRAMINE (CHLORHYDRATE DE) [Suspect]
     Active Substance: CLOMIPRAMINE HYDROCHLORIDE
     Indication: PSYCHIATRIC SYMPTOM
     Dosage: 150 MG
     Route: 048
     Dates: start: 20200928, end: 20201016
  2. HAVLANE [Concomitant]
     Active Substance: LOPRAZOLAM
  3. DIAZEPAM. [Suspect]
     Active Substance: DIAZEPAM
     Indication: PSYCHIATRIC SYMPTOM
     Dosage: 10 MG
     Route: 048
     Dates: start: 20201005

REACTIONS (2)
  - Tremor [Recovered/Resolved]
  - Gait disturbance [Recovered/Resolved]

NARRATIVE: CASE EVENT DATE: 20201014
